FAERS Safety Report 16725097 (Version 1)
Quarter: 2019Q4

REPORT INFORMATION
  Report Type: Spontaneous
  Country: US (occurrence: US)
  Receive Date: 20190820
  Receipt Date: 20190820
  Transmission Date: 20200122
  Serious: Yes (Disabling)
  Sender: FDA-Public Use
  Company Number: None

PATIENT
  Age: 41 Year
  Sex: Male
  Weight: 92.7 kg

DRUGS (2)
  1. MEN^S ONE A DAY [Concomitant]
  2. CVS DRY EYE RELIEF LUBRICANT EYE DROPS [Suspect]
     Active Substance: GLYCERIN\HYPROMELLOSES\POLYETHYLENE GLYCOL 400
     Indication: DRY EYE
     Dosage: ?          QUANTITY:1 DROP(S);?
     Route: 047
     Dates: start: 20190115, end: 20190819

REACTIONS (3)
  - Foreign body sensation in eyes [None]
  - Recalled product administered [None]
  - Swelling of eyelid [None]

NARRATIVE: CASE EVENT DATE: 20190815
